FAERS Safety Report 9786895 (Version 4)
Quarter: 2014Q1

REPORT INFORMATION
  Report Type: Report from Study
  Country: US (occurrence: US)
  Receive Date: 20131227
  Receipt Date: 20140304
  Transmission Date: 20141002
  Serious: Yes (Hospitalization)
  Sender: FDA-Public Use
  Company Number: US-ONYX-2013-2119

PATIENT
  Age: 58 Year
  Sex: Male
  Weight: 149.2 kg

DRUGS (5)
  1. CARFILZOMIB [Suspect]
     Indication: PLASMA CELL MYELOMA
     Route: 042
     Dates: start: 20131212, end: 20140123
  2. CARFILZOMIB [Suspect]
     Route: 042
     Dates: end: 20131220
  3. CARFILZOMIB [Suspect]
     Dosage: CYCLE 2
     Route: 042
     Dates: start: 20140116, end: 20140123
  4. POMALIDOMIDE [Concomitant]
     Indication: PLASMA CELL MYELOMA
     Dates: start: 20131212, end: 20131220
  5. DEXAMETHASONE [Concomitant]
     Indication: PLASMA CELL MYELOMA
     Dates: start: 20131212, end: 20131220

REACTIONS (5)
  - Fluid overload [Recovered/Resolved]
  - Fatigue [Recovered/Resolved]
  - Hyperkalaemia [Recovered/Resolved]
  - Renal failure acute [None]
  - Pyrexia [None]
